FAERS Safety Report 8574356-2 (Version None)
Quarter: 2012Q3

REPORT INFORMATION
  Report Type: 
  Country: None (occurrence: None)
  Receive Date: 20120806
  Receipt Date: 20120725
  Transmission Date: 20120928
  Serious: Yes (Other)
  Sender: FDA-Public Use
  Company Number: IT-TEVA-350573ISR

PATIENT
  Sex: Male

DRUGS (2)
  1. PEMETREXED DISODICO [Concomitant]
     Dosage: 900 MILLIGRAM DAILY;
     Route: 042
     Dates: start: 20120622, end: 20120713
  2. CARBOPLATIN [Suspect]
     Dosage: 500 MILLIGRAM DAILY;
     Route: 042
     Dates: start: 20120622, end: 20120713

REACTIONS (5)
  - DYSPNOEA [None]
  - FLUSHING [None]
  - COUGH [None]
  - PO2 DECREASED [None]
  - ABDOMINAL DISCOMFORT [None]
